FAERS Safety Report 9456369 (Version 1)
Quarter: 2013Q3

REPORT INFORMATION
  Report Type: Spontaneous
  Country: IT (occurrence: IT)
  Receive Date: 20130813
  Receipt Date: 20130813
  Transmission Date: 20140515
  Serious: Yes (Hospitalization)
  Sender: FDA-Public Use
  Company Number: IT-ACTAVIS-2013-14248

PATIENT
  Age: 48 Year
  Sex: Female

DRUGS (3)
  1. IBUPROFEN (UNKNOWN) [Suspect]
     Indication: HEADACHE
     Dosage: 400 MG, UNKNOWN
     Route: 048
     Dates: start: 20130515, end: 20130515
  2. PARACETAMOL (UNKNOWN) [Suspect]
     Indication: HEADACHE
     Dosage: 1000 MG, UNK
     Route: 048
     Dates: start: 20130514, end: 20130516
  3. EFEXOR [Concomitant]
     Indication: PRODUCT USED FOR UNKNOWN INDICATION
     Dosage: 37.5 MG, UNKNOWN
     Route: 065

REACTIONS (4)
  - Loss of consciousness [Unknown]
  - Grand mal convulsion [Unknown]
  - Vertigo [Unknown]
  - Vomiting [Unknown]
